FAERS Safety Report 22776984 (Version 3)
Quarter: 2023Q4

REPORT INFORMATION
  Report Type: Spontaneous
  Country: US (occurrence: None)
  Receive Date: 20230802
  Receipt Date: 20231005
  Transmission Date: 20240110
  Serious: No
  Sender: FDA-Public Use
  Company Number: US-Eisai Medical Research-EC-2023-142405

PATIENT
  Age: 67 Year
  Sex: Male
  Weight: 99.7 kg

DRUGS (10)
  1. LEQEMBI [Suspect]
     Active Substance: LECANEMAB-IRMB
     Indication: Dementia Alzheimer^s type
     Route: 042
     Dates: start: 20230607, end: 202308
  2. LEQEMBI [Suspect]
     Active Substance: LECANEMAB-IRMB
     Indication: Dementia
     Route: 042
     Dates: start: 2023
  3. TYLENOL [Concomitant]
     Active Substance: ACETAMINOPHEN
  4. CELEBREX [Concomitant]
     Active Substance: CELECOXIB
  5. FAMOTIDINE [Concomitant]
     Active Substance: FAMOTIDINE
  6. STRATTERA [Concomitant]
     Active Substance: ATOMOXETINE HYDROCHLORIDE
  7. ARICEPT [Concomitant]
     Active Substance: DONEPEZIL HYDROCHLORIDE
     Route: 048
  8. VITAMIN D [Concomitant]
     Active Substance: VITAMIN D NOS
  9. VITAMINS [Concomitant]
     Active Substance: VITAMINS
  10. I-CAP [Concomitant]

REACTIONS (6)
  - Chills [Recovered/Resolved]
  - Nausea [Recovered/Resolved]
  - Vomiting [Recovered/Resolved]
  - Back pain [Unknown]
  - Headache [Recovered/Resolved]
  - Nasal congestion [Not Recovered/Not Resolved]

NARRATIVE: CASE EVENT DATE: 20230601
